FAERS Safety Report 8839512 (Version 1)
Quarter: 2012Q4

REPORT INFORMATION
  Report Type: 
  Country: CA (occurrence: CA)
  Receive Date: 20121015
  Receipt Date: 20121015
  Transmission Date: 20130627
  Serious: Yes (Death)
  Sender: FDA-Public Use
  Company Number: CA-ABBOTT-12P-028-0994883-00

PATIENT
  Sex: Male
  Weight: 77.18 kg

DRUGS (2)
  1. LUPRON DEPOT [Suspect]
     Indication: PROSTATE CANCER
     Dosage: 4 month
     Dates: start: 20050601, end: 20120509
  2. UNKNOWN MEDICATION (NON-ABBOTT) [Concomitant]
     Indication: PROSTATE CANCER

REACTIONS (3)
  - Death [Fatal]
  - Nausea [Unknown]
  - Asthenia [Unknown]
